FAERS Safety Report 7510298-9 (Version None)
Quarter: 2011Q2

REPORT INFORMATION
  Report Type: 
  Country: None (occurrence: None)
  Receive Date: 20110527
  Receipt Date: 20110517
  Transmission Date: 20111010
  Serious: Yes (Death)
  Sender: FDA-Public Use
  Company Number: DE-UCBSA-032034

PATIENT

DRUGS (1)
  1. VIMPAT [Suspect]

REACTIONS (1)
  - DROWNING [None]
